FAERS Safety Report 25046112 (Version 1)
Quarter: 2025Q1

REPORT INFORMATION
  Report Type: Spontaneous
  Country: US (occurrence: None)
  Receive Date: 20250306
  Receipt Date: 20250306
  Transmission Date: 20250408
  Serious: Yes (Hospitalization)
  Sender: FDA-CTU
  Company Number: None

PATIENT
  Sex: Female

DRUGS (1)
  1. VIGABATRIN [Suspect]
     Active Substance: VIGABATRIN
     Indication: Infantile spasms
     Dosage: FREQUENCY : DAILY;?
     Route: 048
     Dates: start: 20241231

REACTIONS (3)
  - Malaise [None]
  - Ketogenic diet [None]
  - Intentional product use issue [None]

NARRATIVE: CASE EVENT DATE: 20250209
